FAERS Safety Report 7953629-8 (Version None)
Quarter: 2011Q4

REPORT INFORMATION
  Report Type: 
  Country: None (occurrence: None)
  Receive Date: 20111202
  Receipt Date: 20111118
  Transmission Date: 20120403
  Serious: Yes (Other)
  Sender: FDA-Public Use
  Company Number: US-ELI_LILLY_AND_COMPANY-US201109004544

PATIENT
  Sex: Female

DRUGS (1)
  1. HUMALOG [Suspect]
     Indication: DIABETES MELLITUS
     Dosage: 20 U, UNKNOWN

REACTIONS (6)
  - BLOOD GLUCOSE INCREASED [None]
  - TREMOR [None]
  - IRRITABILITY [None]
  - CONFUSIONAL STATE [None]
  - DIZZINESS [None]
  - MENTAL DISORDER [None]
